FAERS Safety Report 6345806-7 (Version None)
Quarter: 2009Q3

REPORT INFORMATION
  Report Type: 
  Country: None (occurrence: None)
  Receive Date: 20090821
  Receipt Date: 20090618
  Transmission Date: 20100115
  Serious: No
  Sender: FDA-Public Use
  Company Number: 8047979

PATIENT
  Age: 69 Year
  Sex: Male
  Weight: 108.8 kg

DRUGS (8)
  1. CIMZIA [Suspect]
     Indication: COLITIS ULCERATIVE
     Dosage: 400 MG SC
     Route: 058
     Dates: start: 20090610
  2. CORTIZAN [Concomitant]
  3. IMDUR [Concomitant]
  4. LIPITOR [Concomitant]
  5. PREDNISONE [Concomitant]
  6. MULTI-VITAMIN [Concomitant]
  7. DILTIAZEM [Concomitant]
  8. LIALDA [Concomitant]

REACTIONS (4)
  - DECREASED APPETITE [None]
  - FREQUENT BOWEL MOVEMENTS [None]
  - OFF LABEL USE [None]
  - OROPHARYNGEAL PAIN [None]
